FAERS Safety Report 20609872 (Version 1)
Quarter: 2022Q1

REPORT INFORMATION
  Report Type: Spontaneous
  Country: US (occurrence: US)
  Receive Date: 20220318
  Receipt Date: 20220318
  Transmission Date: 20220423
  Serious: No
  Sender: FDA-Public Use
  Company Number: US-NOVARTISTESTPH-NVSC2022US062231

PATIENT
  Age: 14 Year
  Sex: Male

DRUGS (2)
  1. GABAPENTIN [Suspect]
     Active Substance: GABAPENTIN
     Indication: Product used for unknown indication
     Dosage: UNK
     Route: 065
  2. ALPELISIB [Suspect]
     Active Substance: ALPELISIB
     Indication: Product used for unknown indication
     Dosage: 300 MG, QD
     Route: 065

REACTIONS (3)
  - Pain [Unknown]
  - Spinal segmental dysfunction [Unknown]
  - PIK3CA-activated mutation [Unknown]
